FAERS Safety Report 14860943 (Version 1)
Quarter: 2018Q2

REPORT INFORMATION
  Report Type: Spontaneous
  Country: US (occurrence: US)
  Receive Date: 20180422
  Receipt Date: 20180422
  Transmission Date: 20180711
  Serious: No
  Sender: FDA-Public Use
  Company Number: None

PATIENT
  Age: 38 Year
  Sex: Female
  Weight: 103.5 kg

DRUGS (4)
  1. CONCERTA [Concomitant]
     Active Substance: METHYLPHENIDATE HYDROCHLORIDE
  2. TOPROL XL [Concomitant]
     Active Substance: METOPROLOL SUCCINATE
  3. TOPAMAX [Concomitant]
     Active Substance: TOPIRAMATE
  4. PAZEO [Suspect]
     Active Substance: OLOPATADINE HYDROCHLORIDE
     Indication: EYE ALLERGY
     Dosage: ?          QUANTITY:1 GTT DROP(S);?
     Route: 047
     Dates: start: 20180419, end: 20180419

REACTIONS (12)
  - Visual impairment [None]
  - Eye pain [None]
  - Malaise [None]
  - Lacrimation increased [None]
  - Instillation site pain [None]
  - Eye swelling [None]
  - Eye irritation [None]
  - Photophobia [None]
  - Ocular hyperaemia [None]
  - Vision blurred [None]
  - Skin burning sensation [None]
  - Impaired work ability [None]

NARRATIVE: CASE EVENT DATE: 20180420
